FAERS Safety Report 6313512-0 (Version None)
Quarter: 2009Q3

REPORT INFORMATION
  Report Type: 
  Country: None (occurrence: None)
  Receive Date: 20090818
  Receipt Date: 20090219
  Transmission Date: 20100115
  Serious: No
  Sender: FDA-Public Use
  Company Number: US-BAYER-200915539NA

PATIENT
  Age: 57 Year
  Sex: Female

DRUGS (1)
  1. MAGNEVIST [Suspect]
     Indication: COMPUTERISED TOMOGRAM
     Dosage: TOTAL DAILY DOSE: 15 ML  UNIT DOSE: 15 ML
     Route: 042
     Dates: start: 20090207, end: 20090207

REACTIONS (1)
  - TREMOR [None]
